FAERS Safety Report 6445648-8 (Version None)
Quarter: 2009Q4

REPORT INFORMATION
  Report Type: 
  Country: None (occurrence: None)
  Receive Date: 20091118
  Receipt Date: 20091118
  Transmission Date: 20100525
  Serious: Yes (Other)
  Sender: FDA-Public Use
  Company Number: None

PATIENT
  Sex: Female
  Weight: 54.4316 kg

DRUGS (1)
  1. HYDROXYCHLOROQUINE FOR PLAQUENIL 200 MG ^698 200 WATSON^ WATSON LAB (O [Suspect]
     Indication: SYSTEMIC LUPUS ERYTHEMATOSUS
     Dosage: 200 MG ONCE A DAY ORALLY
     Route: 048
     Dates: start: 20090115, end: 20090911

REACTIONS (2)
  - AGEUSIA [None]
  - ANOSMIA [None]
